FAERS Safety Report 10907935 (Version 1)
Quarter: 2015Q1

REPORT INFORMATION
  Report Type: Spontaneous
  Country: US (occurrence: US)
  Receive Date: 20150312
  Receipt Date: 20150312
  Transmission Date: 20150721
  Serious: No
  Sender: FDA-Public Use
  Company Number: US-INCYTE CORPORATION-2014IN003609

PATIENT
  Age: 67 Year
  Sex: Male

DRUGS (5)
  1. PENICILLIN V                       /00001801/ [Concomitant]
  2. HYDROXYUREA. [Concomitant]
     Active Substance: HYDROXYUREA
  3. ASPIRIN. [Concomitant]
     Active Substance: ASPIRIN
  4. JAKAFI [Suspect]
     Active Substance: RUXOLITINIB
     Dosage: 10 MG, BID
     Route: 048
     Dates: start: 20141027, end: 20141215
  5. JAKAFI [Suspect]
     Active Substance: RUXOLITINIB
     Indication: MYELOFIBROSIS
     Dosage: 5 MG, BID
     Route: 048
     Dates: start: 20141021

REACTIONS (1)
  - Drug dose omission [Unknown]

NARRATIVE: CASE EVENT DATE: 20141124
